FAERS Safety Report 6272505-2 (Version None)
Quarter: 2009Q3

REPORT INFORMATION
  Report Type: 
  Country: None (occurrence: None)
  Receive Date: 20090716
  Receipt Date: 20090716
  Transmission Date: 20100115
  Serious: Yes (Other)
  Sender: FDA-Public Use
  Company Number: None

PATIENT
  Sex: Male

DRUGS (2)
  1. TYLENOL ELIXIR [Suspect]
  2. VALIUM [Suspect]

REACTIONS (1)
  - PNEUMONIA [None]
